FAERS Safety Report 6028863-7 (Version None)
Quarter: 2009Q1

REPORT INFORMATION
  Report Type: 
  Country: None (occurrence: None)
  Receive Date: 20090105
  Receipt Date: 20090105
  Transmission Date: 20090719
  Serious: Yes (Hospitalization)
  Sender: FDA-Public Use
  Company Number: None

PATIENT
  Age: 66 Year
  Sex: Male

DRUGS (2)
  1. SODIUM PHOSPHATES [Suspect]
     Indication: COLONOSCOPY
     Dosage: 30 ML BID PO
     Route: 048
     Dates: start: 20080302, end: 20080302
  2. HYDROCHLOROTHIAZIDE [Suspect]
     Indication: HYPERTENSION
     Dosage: 25 MG EVEY DAY PO
     Route: 048
     Dates: start: 20071203, end: 20080303

REACTIONS (3)
  - DEHYDRATION [None]
  - HYPOTENSION [None]
  - RENAL FAILURE ACUTE [None]
